FAERS Safety Report 9837755 (Version 2)
Quarter: 2014Q2

REPORT INFORMATION
  Report Type: Spontaneous
  Country: US (occurrence: None)
  Receive Date: 20131205
  Receipt Date: 20140416
  Transmission Date: 20141212
  Serious: No
  Sender: FDA-Public Use
  Company Number: 163-POMAL-13082810

PATIENT
  Age: 64 Year
  Sex: Male
  Weight: 95.3 kg

DRUGS (3)
  1. POMALYST [Suspect]
     Indication: PLASMA CELL MYELOMA
     Dosage: 4 MG, 21 IN 28 D, PO
     Route: 048
     Dates: start: 201308, end: 201308
  2. ASPIRIN (ACETYLSALICYLIC ACID) [Concomitant]
  3. CENTRUM MULTIVITAMIN (MULTIVITAMINS) [Concomitant]

REACTIONS (7)
  - Swelling face [None]
  - Feeling jittery [None]
  - Insomnia [None]
  - Rash generalised [None]
  - Fatigue [None]
  - Dizziness [None]
  - Muscle spasms [None]
